FAERS Safety Report 20824281 (Version 3)
Quarter: 2023Q1

REPORT INFORMATION
  Report Type: Spontaneous
  Country: US (occurrence: US)
  Receive Date: 20220513
  Receipt Date: 20230103
  Transmission Date: 20230417
  Serious: No
  Sender: FDA-Public Use
  Company Number: US-Vifor (International) Inc.-VIT-2022-02726

PATIENT
  Age: 62 Year
  Sex: Male
  Weight: 56 kg

DRUGS (4)
  1. MIRCERA [Suspect]
     Active Substance: METHOXY POLYETHYLENE GLYCOL-EPOETIN BETA
     Indication: Product used for unknown indication
  2. MIRCERA [Suspect]
     Active Substance: METHOXY POLYETHYLENE GLYCOL-EPOETIN BETA
     Dosage: DOSE NUMBER: 4 AND DOSE CATEGORY: 4
     Dates: start: 20220312
  3. VENOFER [Suspect]
     Active Substance: IRON SUCROSE
     Indication: Product used for unknown indication
     Route: 042
  4. CALCITRIOL [Concomitant]
     Active Substance: CALCITRIOL
     Route: 048

REACTIONS (2)
  - Drug hypersensitivity [Recovered/Resolved]
  - Feeling hot [Recovered/Resolved]

NARRATIVE: CASE EVENT DATE: 20220312
